FAERS Safety Report 7298858-4 (Version None)
Quarter: 2011Q1

REPORT INFORMATION
  Report Type: 
  Country: None (occurrence: None)
  Receive Date: 20110217
  Receipt Date: 20100607
  Transmission Date: 20110831
  Serious: No
  Sender: FDA-Public Use
  Company Number: US-PFIZER INC-2010071630

PATIENT
  Sex: Female

DRUGS (2)
  1. COVERA-HS [Suspect]
     Dosage: 240 MG, UNK
  2. VERAPAMIL [Suspect]
     Dosage: UNK

REACTIONS (3)
  - FEELING ABNORMAL [None]
  - FATIGUE [None]
  - PRODUCT ODOUR ABNORMAL [None]
